FAERS Safety Report 16626739 (Version 1)
Quarter: 2019Q3

REPORT INFORMATION
  Report Type: Report from Study
  Country: AU (occurrence: AU)
  Receive Date: 20190724
  Receipt Date: 20190724
  Transmission Date: 20191004
  Serious: Yes (Hospitalization, Other)
  Sender: FDA-Public Use
  Company Number: AU-ALXN-A201814803AA

PATIENT
  Age: 54 Year
  Sex: Female

DRUGS (3)
  1. SOLIRIS [Suspect]
     Active Substance: ECULIZUMAB
     Indication: ATYPICAL HAEMOLYTIC URAEMIC SYNDROME
     Dosage: UNK
     Route: 042
     Dates: start: 20160428, end: 20160519
  2. SOLIRIS [Suspect]
     Active Substance: ECULIZUMAB
     Dosage: 1200 MG, Q2W
     Route: 042
  3. SOLIRIS [Suspect]
     Active Substance: ECULIZUMAB
     Dosage: 1200 MG, Q2W
     Route: 042
     Dates: start: 20160526

REACTIONS (24)
  - White blood cell count decreased [Recovered/Resolved]
  - Malaise [Recovering/Resolving]
  - Yellow skin [Unknown]
  - Blood albumin decreased [Unknown]
  - Blood creatinine increased [Unknown]
  - Protein total decreased [Unknown]
  - Alanine aminotransferase increased [Unknown]
  - Device related infection [Recovered/Resolved]
  - Headache [Recovering/Resolving]
  - Pyrexia [Recovering/Resolving]
  - Sepsis [Unknown]
  - Influenza like illness [Recovering/Resolving]
  - Dyspnoea [Recovered/Resolved]
  - Constipation [Unknown]
  - Blood pressure decreased [Unknown]
  - Lethargy [Unknown]
  - Hepatitis viral [Recovered/Resolved]
  - Pain [Recovered/Resolved]
  - Gamma-glutamyltransferase increased [Unknown]
  - Back pain [Recovered/Resolved]
  - Fatigue [Recovering/Resolving]
  - Influenza [Recovered/Resolved]
  - Cough [Unknown]
  - Hepatic enzyme increased [Unknown]

NARRATIVE: CASE EVENT DATE: 201810
